FAERS Safety Report 17220954 (Version 1)
Quarter: 2019Q4

REPORT INFORMATION
  Report Type: Spontaneous
  Country: US (occurrence: US)
  Receive Date: 20191231
  Receipt Date: 20191231
  Transmission Date: 20200122
  Serious: Yes (Other)
  Sender: FDA-Public Use
  Company Number: US-FOUNDATIONCONSUMERHC-2019-US-015865

PATIENT
  Sex: Female

DRUGS (1)
  1. PLAN B ONE-STEP [Suspect]
     Active Substance: LEVONORGESTREL
     Indication: POST COITAL CONTRACEPTION
     Dosage: 1.5MG X 2 TAKEN BACK TO BACK
     Route: 048

REACTIONS (4)
  - Pregnancy after post coital contraception [Unknown]
  - Intentional product misuse [Recovered/Resolved]
  - Inappropriate schedule of product administration [Recovered/Resolved]
  - Drug ineffective [Unknown]
